FAERS Safety Report 20656647 (Version 1)
Quarter: 2022Q1

REPORT INFORMATION
  Report Type: Spontaneous
  Country: AU (occurrence: AU)
  Receive Date: 20220331
  Receipt Date: 20220331
  Transmission Date: 20220423
  Serious: Yes (Hospitalization, Other)
  Sender: FDA-Public Use
  Company Number: AU-AMGEN-AUSSP2022051044

PATIENT
  Age: 49 Year
  Sex: Female

DRUGS (1)
  1. XGEVA [Suspect]
     Active Substance: DENOSUMAB
     Indication: Breast cancer metastatic
     Dosage: 120 MILLIGRAM
     Route: 065
     Dates: start: 201308, end: 202003

REACTIONS (5)
  - Hypercalcaemia [Recovered/Resolved]
  - Blood parathyroid hormone decreased [Unknown]
  - Rebound effect [Unknown]
  - C-telopeptide increased [Unknown]
  - Hypocalcaemia [Recovered/Resolved]

NARRATIVE: CASE EVENT DATE: 20200101
